FAERS Safety Report 7814139-1 (Version None)
Quarter: 2011Q4

REPORT INFORMATION
  Report Type: 
  Country: None (occurrence: None)
  Receive Date: 20111014
  Receipt Date: 20110930
  Transmission Date: 20120403
  Serious: Yes (Hospitalization, Other)
  Sender: FDA-Public Use
  Company Number: US-BAYER-2011-082056

PATIENT
  Age: 22 Year
  Sex: Female
  Weight: 63 kg

DRUGS (8)
  1. ACETAMINOPHEN W/ PROPOXYPHENE HCL [Concomitant]
     Dosage: UNK
     Route: 048
     Dates: start: 20100606
  2. YASMIN [Suspect]
     Indication: ACNE
     Dosage: UNK
     Dates: start: 20021101, end: 20100101
  3. VYVANSE [Concomitant]
     Dosage: 40 MG, UNK
     Route: 048
     Dates: start: 20100609
  4. YAZ [Suspect]
     Indication: ACNE
     Dosage: UNK
     Dates: start: 20021101, end: 20100101
  5. YAZ [Suspect]
     Indication: PREMENSTRUAL SYNDROME
  6. YASMIN [Suspect]
     Indication: PREMENSTRUAL SYNDROME
  7. PROMETHAZINE [Concomitant]
     Dosage: 25 MG, UNK
     Route: 048
     Dates: start: 20100606
  8. ONDANSETRON [Concomitant]
     Dosage: 4 MG, UNK
     Dates: start: 20100606

REACTIONS (10)
  - PULMONARY EMBOLISM [None]
  - BRONCHIAL HYPERREACTIVITY [None]
  - DYSPNOEA [None]
  - HEART RATE IRREGULAR [None]
  - CHEST PAIN [None]
  - LENTIGO [None]
  - ATRIAL SEPTAL DEFECT [None]
  - HEPATIC MASS [None]
  - COUGH [None]
  - CARDIAC DISORDER [None]
